FAERS Safety Report 8133585 (Version 3)
Quarter: 2012Q4

REPORT INFORMATION
  Report Type: Spontaneous
  Country: US (occurrence: US)
  Receive Date: 20110913
  Receipt Date: 20121218
  Transmission Date: 20130627
  Serious: Yes (Other)
  Sender: FDA-Public Use
  Company Number: PHEH2011US03635

PATIENT
  Sex: Male

DRUGS (1)
  1. ZOMETA (ZOLEDRONATE) [Suspect]
     Indication: PROSTATE CANCER
     Dosage: UNK
     Dates: start: 2005, end: 200910

REACTIONS (1)
  - Osteonecrosis of jaw [Unknown]
